FAERS Safety Report 9904679 (Version 2)
Quarter: 2014Q1

REPORT INFORMATION
  Report Type: Report from Study
  Country: DE (occurrence: DE)
  Receive Date: 20140218
  Receipt Date: 20140218
  Transmission Date: 20141002
  Serious: Yes (Hospitalization)
  Sender: FDA-Public Use
  Company Number: DE-ROCHE-1010214

PATIENT
  Sex: Female
  Weight: 76 kg

DRUGS (7)
  1. RITUXIMAB [Suspect]
     Indication: NON-HODGKIN^S LYMPHOMA
     Route: 042
     Dates: start: 20111101
  2. VINCRISTIN [Concomitant]
     Indication: NON-HODGKIN^S LYMPHOMA
     Route: 042
     Dates: start: 20111027
  3. GRANISETRON [Concomitant]
     Indication: PROPHYLAXIS OF NAUSEA AND VOMITING
     Route: 042
     Dates: start: 20111101
  4. SOLU-DECORTIN [Concomitant]
     Route: 042
     Dates: start: 20111101
  5. UROMITEXAN [Concomitant]
     Route: 048
     Dates: start: 20111101
  6. CYCLOPHOSPHAMIDE [Concomitant]
     Indication: NON-HODGKIN^S LYMPHOMA
     Route: 042
     Dates: start: 20111101
  7. DOXORUBICIN [Concomitant]
     Indication: NON-HODGKIN^S LYMPHOMA
     Route: 042
     Dates: start: 20111102

REACTIONS (4)
  - Anaphylactic reaction [Recovered/Resolved]
  - Syncope [Recovered/Resolved]
  - Hypotension [Recovered/Resolved]
  - Pulmonary embolism [Recovered/Resolved]
